FAERS Safety Report 6564995-2 (Version None)
Quarter: 2010Q1

REPORT INFORMATION
  Report Type: 
  Country: None (occurrence: None)
  Receive Date: 20100201
  Receipt Date: 20100120
  Transmission Date: 20100710
  Serious: Yes (Hospitalization, Other)
  Sender: FDA-Public Use
  Company Number: US-PFIZER INC-2009230264

PATIENT
  Sex: Female

DRUGS (1)
  1. CHANTIX [Suspect]
     Dosage: 1 MG, 2X/DAY
     Route: 048
     Dates: start: 20070101

REACTIONS (17)
  - ABNORMAL DREAMS [None]
  - ACUTE RESPIRATORY FAILURE [None]
  - AGITATION [None]
  - ALCOHOL POISONING [None]
  - ALTERED STATE OF CONSCIOUSNESS [None]
  - ANXIETY [None]
  - APPENDICECTOMY [None]
  - CARDIOMEGALY [None]
  - DELIRIUM TREMENS [None]
  - DEPRESSION [None]
  - DRUG ABUSE [None]
  - LEUKOCYTOSIS [None]
  - MENTAL STATUS CHANGES [None]
  - PANIC ATTACK [None]
  - PNEUMONIA [None]
  - SINUS TACHYCARDIA [None]
  - SUBSTANCE ABUSE [None]
